FAERS Safety Report 19670435 (Version 3)
Quarter: 2021Q3

REPORT INFORMATION
  Report Type: Spontaneous
  Country: UA (occurrence: UA)
  Receive Date: 20210806
  Receipt Date: 20210908
  Transmission Date: 20211014
  Serious: Yes (Death, Life-Threatening, Hospitalization, Other)
  Sender: FDA-Public Use
  Company Number: UA-ABBVIE-21K-269-4023036-00

PATIENT
  Age: 68 Year
  Sex: Male

DRUGS (12)
  1. MERONEM [Concomitant]
     Active Substance: MEROPENEM
     Indication: PRODUCT USED FOR UNKNOWN INDICATION
     Route: 065
  2. VENCLYXTO [Suspect]
     Active Substance: VENETOCLAX
     Route: 048
     Dates: start: 202107
  3. LEVOFLOXACIN. [Concomitant]
     Active Substance: LEVOFLOXACIN
     Indication: ANTIBIOTIC PROPHYLAXIS
     Route: 065
  4. VENCLYXTO [Suspect]
     Active Substance: VENETOCLAX
     Dosage: 200 MG ON DAY 2
     Route: 048
     Dates: start: 20210629, end: 20210629
  5. VENCLYXTO [Suspect]
     Active Substance: VENETOCLAX
     Dosage: 300 MG ON DAY 3
     Route: 048
     Dates: start: 20210630, end: 20210630
  6. CIPROFLOXACIN. [Concomitant]
     Active Substance: CIPROFLOXACIN
     Indication: ANTIBIOTIC PROPHYLAXIS
     Route: 065
  7. AMIKACIN. [Concomitant]
     Active Substance: AMIKACIN
     Indication: ANTIBIOTIC PROPHYLAXIS
     Route: 065
  8. VENCLYXTO [Suspect]
     Active Substance: VENETOCLAX
     Indication: ACUTE MYELOID LEUKAEMIA
     Dosage: 100 MG ON DAY 1
     Route: 048
     Dates: start: 20210628, end: 20210628
  9. AZACITIDINE. [Concomitant]
     Active Substance: AZACITIDINE
     Indication: ACUTE MYELOID LEUKAEMIA
     Dosage: 1 A DAY ON DAYS 1?5 AND 8?9 OF THE CYCLE
     Route: 058
     Dates: start: 20210628, end: 20210726
  10. AZACITIDINE. [Concomitant]
     Active Substance: AZACITIDINE
     Dates: start: 202107
  11. VENCLYXTO [Suspect]
     Active Substance: VENETOCLAX
     Dosage: 100 MG ON DAY 4
     Route: 048
     Dates: start: 20210701, end: 20210726
  12. ITRACONAZOLE. [Concomitant]
     Active Substance: ITRACONAZOLE
     Indication: ANTIFUNGAL PROPHYLAXIS
     Route: 065
     Dates: start: 20210628

REACTIONS (7)
  - Febrile neutropenia [Recovered/Resolved]
  - Asymptomatic COVID-19 [Recovered/Resolved]
  - Off label use [Recovered/Resolved]
  - Off label use [Unknown]
  - Acute respiratory failure [Fatal]
  - Febrile neutropenia [Recovered/Resolved]
  - COVID-19 pneumonia [Fatal]

NARRATIVE: CASE EVENT DATE: 20210628
